FAERS Safety Report 15291427 (Version 2)
Quarter: 2018Q3

REPORT INFORMATION
  Report Type: Spontaneous
  Country: US (occurrence: US)
  Receive Date: 20180817
  Receipt Date: 20180911
  Transmission Date: 20181010
  Serious: No
  Sender: FDA-Public Use
  Company Number: US-PFIZER INC-2018329425

PATIENT
  Age: 43 Year
  Sex: Female

DRUGS (12)
  1. ZOLOFT [Concomitant]
     Active Substance: SERTRALINE HYDROCHLORIDE
     Dosage: 100 MG, 1X/DAY (EVERY MORNING)
     Route: 048
     Dates: start: 20180405
  2. VITAMIN D3 [Concomitant]
     Active Substance: CHOLECALCIFEROL
     Dosage: 4000 IU, DAILY
     Route: 048
  3. ZOLOFT [Concomitant]
     Active Substance: SERTRALINE HYDROCHLORIDE
     Dosage: 25 MG, 1X/DAY(TAKE WITH ONE 100 MG TABLET FOR A TOTAL DOSE OF 125 MG)
     Route: 048
     Dates: start: 20180405
  4. SYNTHROID [Concomitant]
     Active Substance: LEVOTHYROXINE SODIUM
     Dosage: 200 UG, DAILY (TAKE 30 MINUTES TO 1 HOUR BEFORE BREAKFAST)
     Route: 048
     Dates: start: 20180129
  5. SYNTHROID [Concomitant]
     Active Substance: LEVOTHYROXINE SODIUM
     Dosage: 50 UG, DAILY (TAKE 30 MINUTES TO 1 HOUR BEFORE BREAKFAST SHE TAKES THIS WITH THE 200MG DAILY)
     Route: 048
     Dates: start: 20180615
  6. LYRICA [Suspect]
     Active Substance: PREGABALIN
     Indication: FIBROMYALGIA
     Dosage: 50 MG, 2X/DAY
  7. LEVOTHYROXINE. [Concomitant]
     Active Substance: LEVOTHYROXINE
     Indication: HYPOTHYROIDISM
     Dosage: 250 UG, 1X/DAY (250 MCG, ONE TIME IN THE MORNING)
  8. CYMBALTA [Concomitant]
     Active Substance: DULOXETINE HYDROCHLORIDE
     Dosage: 40 MG, DAILY (TAKE 2 CAPSULES BY MOUTH DAILY)
     Route: 048
     Dates: start: 20180821
  9. NUVARING [Concomitant]
     Active Substance: ETHINYL ESTRADIOL\ETONOGESTREL
     Dosage: UNK UNK [ETHINYLESTRADIOL: 015 MG; ETONOGESTREL: 0.12 MG] [3 CONSECUTIVE WEEKS, THEN REMOVE 1 WEEK ]
     Route: 067
  10. LYRICA [Suspect]
     Active Substance: PREGABALIN
     Dosage: 50 MG, 2X/DAY
     Dates: start: 20180529
  11. IMITREX [Concomitant]
     Active Substance: SUMATRIPTAN SUCCINATE
     Indication: MIGRAINE
     Dosage: 50 MG, AS NEEDED (1 TABLET BY MOUTH)
     Route: 048
     Dates: start: 20180615
  12. VALTREX [Concomitant]
     Active Substance: VALACYCLOVIR HYDROCHLORIDE
     Dosage: 4 G, DAILY  (TAKE 2 TABLETS BY MOUTH AT 1ST SIGN OF OUTBREAK, THEN TAKE 2 TABLETS 12 HOURS LATER)
     Route: 048
     Dates: start: 20170712

REACTIONS (4)
  - Pain [Recovered/Resolved]
  - Back pain [Unknown]
  - Arthralgia [Unknown]
  - Drug ineffective [Unknown]

NARRATIVE: CASE EVENT DATE: 2018
